FAERS Safety Report 23265651 (Version 1)
Quarter: 2023Q4

REPORT INFORMATION
  Report Type: Spontaneous
  Country: VN (occurrence: VN)
  Receive Date: 20231206
  Receipt Date: 20231206
  Transmission Date: 20240109
  Serious: Yes (Other)
  Sender: FDA-Public Use
  Company Number: VN-JNJFOC-20231180528

PATIENT
  Age: 50 Year
  Sex: Female

DRUGS (2)
  1. REMICADE [Suspect]
     Active Substance: INFLIXIMAB
     Indication: Colitis ulcerative
     Route: 041
  2. ASPIRIN [Concomitant]
     Active Substance: ASPIRIN
     Indication: Colitis ulcerative
     Dosage: 2G/DAY
     Route: 065

REACTIONS (4)
  - Tuberculosis [Recovering/Resolving]
  - Colitis ulcerative [Unknown]
  - Cytomegalovirus infection [Unknown]
  - Strongyloidiasis [Recovered/Resolved]
